FAERS Safety Report 4778903-8 (Version None)
Quarter: 2005Q3

REPORT INFORMATION
  Report Type: 
  Country: None (occurrence: None)
  Receive Date: 20050922
  Receipt Date: 20050912
  Transmission Date: 20060218
  Serious: Yes (Other)
  Sender: FDA-Public Use
  Company Number: 2005117581

PATIENT
  Sex: Female
  Weight: 70.7611 kg

DRUGS (4)
  1. DETROL [Suspect]
     Indication: DYSURIA
     Dosage: UNKNOWN (1 D), UNKNOWN
     Route: 065
     Dates: start: 20050810, end: 20050810
  2. DETROL [Suspect]
     Indication: POLLAKIURIA
     Dosage: UNKNOWN (1 D), UNKNOWN
     Route: 065
     Dates: start: 20050810, end: 20050810
  3. DETROL [Suspect]
     Indication: URGE INCONTINENCE
     Dosage: UNKNOWN (1 D), UNKNOWN
     Route: 065
     Dates: start: 20050810, end: 20050810
  4. ALL OTHER THERAPEUTIC PRODUCTS (ALL OTHER THERAPEUTIC PRODUCTS) [Concomitant]

REACTIONS (4)
  - ANGINA PECTORIS [None]
  - CONSTIPATION [None]
  - MACULAR DEGENERATION [None]
  - PAINFUL DEFAECATION [None]
